FAERS Safety Report 16915314 (Version 3)
Quarter: 2020Q2

REPORT INFORMATION
  Report Type: Report from Study
  Country: US (occurrence: US)
  Receive Date: 20191014
  Receipt Date: 20200406
  Transmission Date: 20200713
  Serious: Yes (Hospitalization, Other)
  Sender: FDA-Public Use
  Company Number: US-ACTELION-A-US2019-189034

PATIENT
  Sex: Female
  Weight: 68.03 kg

DRUGS (2)
  1. OPSUMIT [Suspect]
     Active Substance: MACITENTAN
     Indication: PULMONARY ARTERIAL HYPERTENSION
     Dosage: 10 MG, QD
     Route: 048
  2. UPTRAVI [Suspect]
     Active Substance: SELEXIPAG
     Indication: PULMONARY ARTERIAL HYPERTENSION
     Dosage: 200 MCG, BID
     Route: 048

REACTIONS (14)
  - Nausea [Unknown]
  - Dialysis [Unknown]
  - Dyspnoea [Unknown]
  - Condition aggravated [Unknown]
  - Fatigue [Unknown]
  - Back disorder [Unknown]
  - Eating disorder [Unknown]
  - Pain [Unknown]
  - Malaise [Unknown]
  - Lung disorder [Unknown]
  - Abdominal discomfort [Unknown]
  - Dyspepsia [Unknown]
  - Headache [Not Recovered/Not Resolved]
  - Ear disorder [Unknown]
